FAERS Safety Report 9675653 (Version 1)
Quarter: 2013Q4

REPORT INFORMATION
  Report Type: Spontaneous
  Country: US (occurrence: None)
  Receive Date: 20131105
  Receipt Date: 20131105
  Transmission Date: 20140711
  Serious: Yes (Other)
  Sender: FDA-Public Use
  Company Number: 2013-US-002588

PATIENT
  Age: 39 Year
  Sex: Female
  Weight: 61.2 kg

DRUGS (6)
  1. XYREM (SODIUM OXYBATE) ORAL SOLUTION, 500MG/ML [Suspect]
     Indication: NARCOLEPSY
     Route: 048
     Dates: start: 201308, end: 201308
  2. XYREM (SODIUM OXYBATE) ORAL SOLUTION, 500MG/ML [Suspect]
     Indication: NARCOLEPSY
     Route: 048
     Dates: start: 201308, end: 201308
  3. XYREM (SODIUM OXYBATE) ORAL SOLUTION, 500MG/ML [Suspect]
     Route: 048
     Dates: start: 201308, end: 201308
  4. SINGULAIR [Concomitant]
  5. FLONASE (FLUTICASONE PROPIONATE) [Concomitant]
  6. ZYRTEC (CETRIZINE HYDROCHLORIDE) [Concomitant]

REACTIONS (2)
  - Arteriovenous malformation [None]
  - Insomnia [None]
